FAERS Safety Report 18571691 (Version 1)
Quarter: 2020Q4

REPORT INFORMATION
  Report Type: Spontaneous
  Country: GB (occurrence: GB)
  Receive Date: 20201202
  Receipt Date: 20201202
  Transmission Date: 20210114
  Serious: Yes (Hospitalization, Other)
  Sender: FDA-Public Use
  Company Number: GB-ASCEND THERAPEUTICS US, LLC-2096576

PATIENT
  Age: 53 Year
  Sex: Female

DRUGS (4)
  1. UTROGESTAN [Suspect]
     Active Substance: PROGESTERONE
  2. ESTROGEL [Suspect]
     Active Substance: ESTRADIOL
  3. ESTROGEL [Suspect]
     Active Substance: ESTRADIOL
     Indication: HORMONE REPLACEMENT THERAPY
     Dates: start: 202007
  4. OESTROGEL (ESTRADIOL) (GEL), UNKNOWN [Suspect]
     Active Substance: ESTRADIOL
     Dates: start: 202007

REACTIONS (1)
  - Transient ischaemic attack [Unknown]
